FAERS Safety Report 7463443-8 (Version None)
Quarter: 2011Q2

REPORT INFORMATION
  Report Type: 
  Country: None (occurrence: None)
  Receive Date: 20110506
  Receipt Date: 20110428
  Transmission Date: 20111010
  Serious: Yes (Hospitalization)
  Sender: FDA-Public Use
  Company Number: B0717226A

PATIENT
  Sex: Female

DRUGS (7)
  1. DIPYRONE [Concomitant]
  2. DIAZEPAM [Concomitant]
  3. SOAPEX [Concomitant]
  4. ACITRETIN [Suspect]
     Route: 048
  5. FLUOXETINE [Concomitant]
  6. NITRAZEPAM [Concomitant]
  7. DRENISON [Concomitant]

REACTIONS (3)
  - PAIN [None]
  - WOUND INFECTION [None]
  - INFECTION [None]
